FAERS Safety Report 8221400-8 (Version None)
Quarter: 2012Q1

REPORT INFORMATION
  Report Type: 
  Country: None (occurrence: None)
  Receive Date: 20120320
  Receipt Date: 20120309
  Transmission Date: 20120608
  Serious: Yes (Other)
  Sender: FDA-Public Use
  Company Number: US-ASTRAZENECA-2012SE16519

PATIENT
  Age: 59 Year
  Sex: Female
  Weight: 74.8 kg

DRUGS (6)
  1. NEXIUM [Suspect]
     Indication: GASTROOESOPHAGEAL REFLUX DISEASE
     Route: 048
  2. ZANTAC [Suspect]
     Indication: GASTROOESOPHAGEAL REFLUX DISEASE
  3. STEROIDS [Concomitant]
  4. PULMICORT FLEXHALER [Suspect]
     Route: 055
     Dates: start: 20120307
  5. ALBUTEROL [Concomitant]
  6. ANTIBIOTICS [Concomitant]

REACTIONS (3)
  - CHEST DISCOMFORT [None]
  - HYPERSENSITIVITY [None]
  - DYSPNOEA [None]
